FAERS Safety Report 9669699 (Version 1)
Quarter: 2013Q4

REPORT INFORMATION
  Report Type: Spontaneous
  Country: US (occurrence: None)
  Receive Date: 20131104
  Receipt Date: 20131104
  Transmission Date: 20140711
  Serious: No
  Sender: FDA-Public Use
  Company Number: None

PATIENT
  Age: 27 Year
  Sex: Male
  Weight: 73.03 kg

DRUGS (1)
  1. OXACILLIN [Suspect]
     Indication: INFECTION
     Route: 042
     Dates: start: 20130927, end: 20131021

REACTIONS (1)
  - Rash [None]
